FAERS Safety Report 6975308-6 (Version None)
Quarter: 2010Q3

REPORT INFORMATION
  Report Type: 
  Country: None (occurrence: None)
  Receive Date: 20100910
  Receipt Date: 20090227
  Transmission Date: 20110219
  Serious: No
  Sender: FDA-Public Use
  Company Number: US-WYE-H08423509

PATIENT
  Sex: Female

DRUGS (3)
  1. PRISTIQ [Suspect]
     Indication: DEPRESSION
     Route: 048
     Dates: start: 20090220
  2. SIMVASTATIN [Concomitant]
  3. NORVASC [Concomitant]

REACTIONS (2)
  - HEADACHE [None]
  - MUSCLE TIGHTNESS [None]
